FAERS Safety Report 15240153 (Version 15)
Quarter: 2019Q4

REPORT INFORMATION
  Report Type: Report from Study
  Country: US (occurrence: US)
  Receive Date: 20180803
  Receipt Date: 20191211
  Transmission Date: 20200122
  Serious: Yes (Hospitalization, Other)
  Sender: FDA-Public Use
  Company Number: US-ACTELION-A-NJ2018-176692

PATIENT
  Age: 57 Year
  Sex: Male
  Weight: 73.92 kg

DRUGS (5)
  1. ELIQUIS [Concomitant]
     Active Substance: APIXABAN
  2. VELETRI [Suspect]
     Active Substance: EPOPROSTENOL
     Indication: PULMONARY ARTERIAL HYPERTENSION
     Dosage: 7.7 NG/KG, PER MIN
     Route: 042
     Dates: start: 2018
  3. TYVASO [Suspect]
     Active Substance: TREPROSTINIL
     Indication: PULMONARY ARTERIAL HYPERTENSION
     Dosage: 18-90 MCG (3-15 BREATHS, QID
     Route: 055
     Dates: start: 20180517, end: 20180725
  4. VELETRI [Suspect]
     Active Substance: EPOPROSTENOL
     Dosage: 9 NG/KG, PER MIN
     Route: 042
  5. DILTIAZEM. [Concomitant]
     Active Substance: DILTIAZEM

REACTIONS (25)
  - Atrial fibrillation [Unknown]
  - Therapy change [Unknown]
  - Ascites [Unknown]
  - Blister [Unknown]
  - Blood potassium decreased [Unknown]
  - Pruritus [Unknown]
  - Asthenia [Recovering/Resolving]
  - Nausea [Unknown]
  - Dyspnoea exertional [Unknown]
  - Headache [Unknown]
  - Palpitations [Recovering/Resolving]
  - Abdominal pain [Unknown]
  - Syncope [Unknown]
  - Dizziness [Unknown]
  - Catheter site pain [Unknown]
  - Pain of skin [Unknown]
  - Vomiting [Unknown]
  - Dialysis [Recovering/Resolving]
  - Dyspnoea [Recovering/Resolving]
  - Loss of consciousness [Unknown]
  - Renal impairment [Recovering/Resolving]
  - Hypotension [Unknown]
  - Catheter site pruritus [Unknown]
  - Chest pain [Not Recovered/Not Resolved]
  - Catheter site rash [Unknown]

NARRATIVE: CASE EVENT DATE: 2018
